FAERS Safety Report 14532157 (Version 2)
Quarter: 2019Q1

REPORT INFORMATION
  Report Type: Report from Study
  Country: US (occurrence: US)
  Receive Date: 20180214
  Receipt Date: 20190228
  Transmission Date: 20190417
  Serious: No
  Sender: FDA-Public Use
  Company Number: US-BAUSCH-BL-2018-004075

PATIENT
  Age: 77 Year
  Sex: Female

DRUGS (15)
  1. PAROXETINE. [Concomitant]
     Active Substance: PAROXETINE
     Indication: PRODUCT USED FOR UNKNOWN INDICATION
     Route: 048
  2. ACETAMINOPHEN AND CODEINE [Concomitant]
     Active Substance: ACETAMINOPHEN\CODEINE PHOSPHATE
     Indication: PRODUCT USED FOR UNKNOWN INDICATION
     Route: 048
  3. ESTRADIOL. [Concomitant]
     Active Substance: ESTRADIOL
     Indication: PRODUCT USED FOR UNKNOWN INDICATION
     Route: 048
  4. ONDANSETRON [Concomitant]
     Active Substance: ONDANSETRON
     Indication: PRODUCT USED FOR UNKNOWN INDICATION
     Route: 048
  5. ATENOLOL. [Concomitant]
     Active Substance: ATENOLOL
     Route: 048
  6. TRAMADOL HCL [Concomitant]
     Active Substance: TRAMADOL HYDROCHLORIDE
     Indication: PRODUCT USED FOR UNKNOWN INDICATION
     Route: 048
  7. CELEBREX [Concomitant]
     Active Substance: CELECOXIB
     Indication: PRODUCT USED FOR UNKNOWN INDICATION
     Route: 048
  8. FUROSEMIDE. [Concomitant]
     Active Substance: FUROSEMIDE
     Indication: PRODUCT USED FOR UNKNOWN INDICATION
     Dosage: AS NEEDED
     Route: 048
  9. HYDROXYZINE HCL [Concomitant]
     Active Substance: HYDROXYZINE HYDROCHLORIDE
     Indication: PRODUCT USED FOR UNKNOWN INDICATION
     Route: 048
  10. OMEPRAZOLE. [Concomitant]
     Active Substance: OMEPRAZOLE
     Indication: PRODUCT USED FOR UNKNOWN INDICATION
     Route: 048
  11. XIFAXAN [Suspect]
     Active Substance: RIFAXIMIN
     Indication: HEPATIC ENCEPHALOPATHY
     Dosage: EARLY FEB/2019 (RAN OUT OF MEDICATION ABOUT TWO WEEKS)
     Route: 048
     Dates: end: 201902
  12. XIFAXAN [Suspect]
     Active Substance: RIFAXIMIN
     Indication: HEPATIC CIRRHOSIS
     Route: 048
     Dates: start: 201702, end: 201712
  13. METHOCARBAMOL. [Concomitant]
     Active Substance: METHOCARBAMOL
     Indication: PRODUCT USED FOR UNKNOWN INDICATION
     Route: 048
  14. LEVOTHYROXINE SODIUM. [Concomitant]
     Active Substance: LEVOTHYROXINE SODIUM
     Indication: PRODUCT USED FOR UNKNOWN INDICATION
     Dosage: 50 UNSPECIFIED UNIT
  15. ATENOLOL. [Concomitant]
     Active Substance: ATENOLOL
     Indication: PRODUCT USED FOR UNKNOWN INDICATION
     Route: 048

REACTIONS (3)
  - Therapy cessation [Unknown]
  - Product availability issue [Unknown]
  - Insurance issue [Unknown]

NARRATIVE: CASE EVENT DATE: 201712
